FAERS Safety Report 22264469 (Version 1)
Quarter: 2023Q2

REPORT INFORMATION
  Report Type: Spontaneous
  Country: CA (occurrence: CA)
  Receive Date: 20230428
  Receipt Date: 20230428
  Transmission Date: 20230722
  Serious: Yes (Hospitalization)
  Sender: FDA-Public Use
  Company Number: CA-JNJFOC-20230459657

PATIENT
  Age: 19 Year
  Sex: Female

DRUGS (3)
  1. REMICADE [Suspect]
     Active Substance: INFLIXIMAB
     Indication: Ankylosing spondylitis
     Route: 041
  2. NAPROXEN [Concomitant]
     Active Substance: NAPROXEN
  3. TYLENOL [Concomitant]
     Active Substance: ACETAMINOPHEN
     Indication: Arthralgia

REACTIONS (5)
  - Impaired quality of life [Unknown]
  - Mastication disorder [Unknown]
  - Sensitivity to weather change [Unknown]
  - Musculoskeletal discomfort [Unknown]
  - Condition aggravated [Unknown]
